FAERS Safety Report 9957872 (Version 2)
Quarter: 2014Q1

REPORT INFORMATION
  Report Type: Report from Study
  Country: US (occurrence: US)
  Receive Date: 20140304
  Receipt Date: 20140304
  Transmission Date: 20141002
  Serious: No
  Sender: FDA-Public Use
  Company Number: US-ABBVIE-13P-163-1069541-00

PATIENT
  Age: 69 Year
  Sex: Male

DRUGS (4)
  1. HUMIRA [Suspect]
     Indication: PSORIASIS
     Dates: start: 20130105, end: 20130302
  2. SIMVASTATIN [Concomitant]
     Indication: BLOOD CHOLESTEROL
  3. LEVOTHYROXINE [Concomitant]
     Indication: THYROID DISORDER
  4. SPIRIVA [Concomitant]
     Indication: CHRONIC OBSTRUCTIVE PULMONARY DISEASE
     Dosage: CAPSULE
     Route: 055

REACTIONS (20)
  - Gait disturbance [Recovering/Resolving]
  - Polymyalgia rheumatica [Recovering/Resolving]
  - Mobility decreased [Recovered/Resolved]
  - Arthralgia [Recovered/Resolved]
  - Pain in extremity [Recovered/Resolved]
  - Muscle spasms [Recovering/Resolving]
  - Arthralgia [Unknown]
  - Drug specific antibody present [Recovered/Resolved]
  - Pain in extremity [Recovered/Resolved]
  - Pain [Recovered/Resolved]
  - Presyncope [Recovered/Resolved]
  - Rash [Unknown]
  - Arthritis [Unknown]
  - Pruritus [Unknown]
  - Drug ineffective [Unknown]
  - Psoriasis [Unknown]
  - Dry skin [Unknown]
  - Psoriatic arthropathy [Unknown]
  - Anxiety [Unknown]
  - Arthritis [Unknown]
